FAERS Safety Report 4638568-2 (Version None)
Quarter: 2005Q2

REPORT INFORMATION
  Report Type: 
  Country: None (occurrence: None)
  Receive Date: 20050419
  Receipt Date: 20050406
  Transmission Date: 20051028
  Serious: Yes (Life-Threatening, Hospitalization, Other)
  Sender: FDA-Public Use
  Company Number: GB-JNJFOC-20040902421

PATIENT
  Sex: Female
  Weight: 106 kg

DRUGS (10)
  1. REMICADE [Suspect]
     Indication: RHEUMATOID ARTHRITIS
     Dosage: INCREASED 300MG TO 320MG
     Route: 042
  2. RANITIDINE [Concomitant]
  3. TRAMADOL HCL [Concomitant]
  4. CALCICHEW [Concomitant]
  5. DICLOFENAC SODIUM [Concomitant]
  6. CO-PROXAMOL [Concomitant]
  7. CO-PROXAMOL [Concomitant]
  8. INSULIN [Concomitant]
  9. METHOTREXATE [Concomitant]
     Dosage: DISCONTINUED 4 - 5 MONTHS AGO.
  10. PREDNISOLONE [Concomitant]

REACTIONS (4)
  - HEPATIC CIRRHOSIS [None]
  - HEPATIC FIBROSIS [None]
  - HEPATIC STEATOSIS [None]
  - HEPATOMEGALY [None]
